FAERS Safety Report 24129633 (Version 1)
Quarter: 2024Q3

REPORT INFORMATION
  Report Type: Spontaneous
  Country: US (occurrence: US)
  Receive Date: 20240724
  Receipt Date: 20240724
  Transmission Date: 20241016
  Serious: Yes (Hospitalization)
  Sender: CIPLA
  Company Number: US-MLMSERVICE-20240709-PI127491-00311-1

PATIENT

DRUGS (3)
  1. TERBINAFINE [Interacting]
     Active Substance: TERBINAFINE
     Indication: Fungal skin infection
     Dosage: 250 MG, DAILY
     Route: 065
  2. PREDNISONE [Interacting]
     Active Substance: PREDNISONE
     Indication: Lupus-like syndrome
     Dosage: 40 MG, UNK
     Route: 065
  3. HYDROXYCHLOROQUINE [Interacting]
     Active Substance: HYDROXYCHLOROQUINE
     Indication: Lupus-like syndrome
     Dosage: 200 MG, UNK
     Route: 065

REACTIONS (2)
  - Drug interaction [Recovering/Resolving]
  - Psoriasis [Recovering/Resolving]
